FAERS Safety Report 8878148 (Version 1)
Quarter: 2012Q4

REPORT INFORMATION
  Report Type: Spontaneous
  Country: DE (occurrence: None)
  Receive Date: 20121026
  Receipt Date: 20121026
  Transmission Date: 20130627
  Serious: Yes (Other)
  Sender: FDA-Public Use
  Company Number: GER/GER/12/0026263

PATIENT
  Sex: Male
  Weight: 85 kg

DRUGS (5)
  1. SIMVASTATIN [Suspect]
     Indication: TYPE  IIB  HYPERLIPIDAEMIA
     Dosage: 10 - 20  mg, Oral
     Route: 048
     Dates: start: 201106, end: 201210
  2. PRAVASTATIN [Suspect]
     Indication: TYPE  IIB  HYPERLIPIDAEMIA
     Route: 048
     Dates: start: 200506
  3. FLUVASTATIN [Suspect]
     Indication: TYPE  IIB  HYPERLIPIDAEMIA
     Dosage: 20 mg,  1 in 1 D,  Oral
     Route: 048
     Dates: start: 200508
  4. TREDAPTIVE [Suspect]
     Indication: TYPE  IIB  HYPERLIPIDAEMIA
     Dosage: 1000 MG,  1 in 1 D,  Oral
     Route: 048
     Dates: start: 201007, end: 201010
  5. EZETROL [Suspect]
     Indication: TYPE  IIB  HYPERLIPIDAEMIA
     Dosage: 10  mg,  1 in 1 D, Oral
     Route: 048
     Dates: start: 200608

REACTIONS (6)
  - Myalgia [None]
  - Abdominal discomfort [None]
  - Pruritus [None]
  - Rash [None]
  - Diarrhoea [None]
  - Faecal incontinence [None]
